FAERS Safety Report 4405548-1 (Version None)
Quarter: 2004Q3

REPORT INFORMATION
  Report Type: 
  Country: None (occurrence: None)
  Receive Date: 20040716
  Receipt Date: 20040707
  Transmission Date: 20050211
  Serious: Yes (Death)
  Sender: FDA-Public Use
  Company Number: 028-20785-04010795 (0)

PATIENT
  Age: 55 Year
  Sex: Female

DRUGS (6)
  1. THALOMID [Suspect]
     Indication: MULTIPLE MYELOMA
     Dosage: 200 MG, DAILY HS, ORAL
     Route: 048
     Dates: start: 20030424, end: 20040101
  2. THALOMID [Suspect]
  3. CYCLOPHOSPHAMIDE [Concomitant]
  4. SOLU-MEDROL [Concomitant]
  5. PREDNISONE TAB [Concomitant]
  6. PAMIDRONATE DISODIUM [Concomitant]

REACTIONS (3)
  - MALIGNANT NEOPLASM PROGRESSION [None]
  - MULTIPLE MYELOMA [None]
  - SEPSIS [None]
